FAERS Safety Report 17883099 (Version 1)
Quarter: 2020Q2

REPORT INFORMATION
  Report Type: Spontaneous
  Country: CN (occurrence: CN)
  Receive Date: 20200611
  Receipt Date: 20200611
  Transmission Date: 20200714
  Serious: Yes (Hospitalization)
  Sender: FDA-Public Use
  Company Number: CN-BAXTER-2020BAX011857

PATIENT
  Age: 7 Year
  Sex: Female
  Weight: 26.1 kg

DRUGS (14)
  1. 0.9% SODIUM CHLORIDE INJECTION [Suspect]
     Active Substance: SODIUM CHLORIDE
     Dosage: 0.9% NS + HEMEIXIN, DOSE RE-INTRODUCED
     Route: 041
  2. ONDANSETRON HYDROCHLORIDE. [Suspect]
     Active Substance: ONDANSETRON HYDROCHLORIDE
     Indication: ANTIEMETIC SUPPORTIVE CARE
     Dosage: ONDANSETRON HYDROCHLORIDE + 0. 9% NS 25 ML
     Route: 042
     Dates: start: 20200512, end: 20200516
  3. ONDANSETRON HYDROCHLORIDE. [Suspect]
     Active Substance: ONDANSETRON HYDROCHLORIDE
     Dosage: ONDANSETRON HYDROCHLORIDE + 0.9% NS, DOSE RE-INTRODUCED
     Route: 042
  4. 0.9% SODIUM CHLORIDE INJECTION [Suspect]
     Active Substance: SODIUM CHLORIDE
     Dosage: 0. 9% NS + ONDANSETRON HYDROCHLORIDE 4.7 MG
     Route: 042
     Dates: start: 20200512, end: 20200516
  5. HEMEIXIN [Suspect]
     Active Substance: TOPOTECAN HYDROCHLORIDE
     Dosage: HEMEIXIN + 0.9 % NS, DOSE RE-INTRODUCED
     Route: 041
  6. ENDOXAN [Suspect]
     Active Substance: CYCLOPHOSPHAMIDE
     Dosage: ENDOXAN + 0.9% NS, DOSE RE-INTRODUCED
     Route: 041
  7. 0.9% SODIUM CHLORIDE INJECTION [Suspect]
     Active Substance: SODIUM CHLORIDE
     Dosage: 0.9% NS + ONDANSETRON HYDROCHLORIDE, DOSE RE-INTRODUCED
     Route: 042
  8. MESNA. [Suspect]
     Active Substance: MESNA
     Indication: PROPHYLAXIS
     Route: 042
     Dates: start: 20200512, end: 20200516
  9. 0.9% SODIUM CHLORIDE INJECTION [Suspect]
     Active Substance: SODIUM CHLORIDE
     Indication: MEDICATION DILUTION
     Dosage: DAY 1-5, 0.9% NS + ENDOXAN 235 MG
     Route: 041
     Dates: start: 20200512, end: 20200516
  10. ENDOXAN [Suspect]
     Active Substance: CYCLOPHOSPHAMIDE
     Indication: NEUROBLASTOMA RECURRENT
     Dosage: DAY 1-5, ENDOXAN + 0. 9% NS 56. 5 ML
     Route: 041
     Dates: start: 20200512, end: 20200516
  11. HEMEIXIN [Suspect]
     Active Substance: TOPOTECAN HYDROCHLORIDE
     Indication: NEUROBLASTOMA RECURRENT
     Dosage: DAY 1-5, HEMEIXIN + 0. 9% NS 25ML
     Route: 041
     Dates: start: 20200512, end: 20200516
  12. MESNA. [Suspect]
     Active Substance: MESNA
     Dosage: DOSE RE-INTRODUCED
     Route: 042
  13. 0.9% SODIUM CHLORIDE INJECTION [Suspect]
     Active Substance: SODIUM CHLORIDE
     Dosage: DAY 1-5, 0. 9% NS + HEMEIXIN 0.7 MG
     Route: 041
     Dates: start: 20200512, end: 20200516
  14. 0.9% SODIUM CHLORIDE INJECTION [Suspect]
     Active Substance: SODIUM CHLORIDE
     Dosage: 0.9% NS + ENDOXAN, DOSE RE-INTRODUCED
     Route: 041

REACTIONS (4)
  - Anaemia [Recovering/Resolving]
  - Neutrophil count decreased [Recovering/Resolving]
  - Haemoglobin decreased [Recovering/Resolving]
  - Pyrexia [Recovered/Resolved]

NARRATIVE: CASE EVENT DATE: 20200528
